FAERS Safety Report 12674126 (Version 2)
Quarter: 2016Q3

REPORT INFORMATION
  Report Type: Spontaneous
  Country: US (occurrence: US)
  Receive Date: 20160822
  Receipt Date: 20160901
  Transmission Date: 20161109
  Serious: No
  Sender: FDA-Public Use
  Company Number: US-PFIZER INC-2016394351

PATIENT
  Age: 82 Year
  Sex: Male

DRUGS (7)
  1. PRILOSEC [Concomitant]
     Active Substance: OMEPRAZOLE MAGNESIUM
     Dosage: TOOK ONE A DAY FOR 14 DAYS
  2. METOPROLOL. [Concomitant]
     Active Substance: METOPROLOL
     Indication: BLOOD PRESSURE ABNORMAL
     Dosage: 50 MG, UNK
  3. PREDNISONE. [Concomitant]
     Active Substance: PREDNISONE
     Indication: NERVE COMPRESSION
     Dosage: TOOK A TAPERING DOSE FOR 6 CONSECUTIVE DAYS.
     Dates: start: 20160727, end: 201608
  4. CRESTOR [Concomitant]
     Active Substance: ROSUVASTATIN CALCIUM
     Indication: BLOOD CHOLESTEROL INCREASED
     Dosage: 5 MG, UNK
  5. NEURONTIN [Suspect]
     Active Substance: GABAPENTIN
     Dosage: 3 CAPSULES FOR ONE DAY
     Route: 048
  6. NEURONTIN [Suspect]
     Active Substance: GABAPENTIN
     Dosage: ONE CAPSULES FOR ONE DAY
     Route: 048
     Dates: end: 20160817
  7. NEURONTIN [Suspect]
     Active Substance: GABAPENTIN
     Indication: NERVE COMPRESSION
     Dosage: 300 MG, 2X/DAY (100 MG CAPSULES THREE CAPSULES TWO TIMES A DAY)
     Route: 048
     Dates: start: 20160727

REACTIONS (9)
  - Product use issue [Unknown]
  - Flushing [Unknown]
  - Disorientation [Not Recovered/Not Resolved]
  - Circumstance or information capable of leading to medication error [Unknown]
  - Abdominal distension [Not Recovered/Not Resolved]
  - Pain [Unknown]
  - Anxiety [Unknown]
  - Sleep disorder [Unknown]
  - Abdominal discomfort [Not Recovered/Not Resolved]

NARRATIVE: CASE EVENT DATE: 20160817
